FAERS Safety Report 16663884 (Version 2)
Quarter: 2019Q3

REPORT INFORMATION
  Report Type: Report from Study
  Country: JP (occurrence: JP)
  Receive Date: 20190802
  Receipt Date: 20190819
  Transmission Date: 20191004
  Serious: Yes (Death)
  Sender: FDA-Public Use
  Company Number: JP-PFIZER INC-2019325585

PATIENT
  Sex: Female
  Weight: 4.9 kg

DRUGS (1)
  1. REVATHIO [Suspect]
     Active Substance: SILDENAFIL CITRATE
     Indication: PULMONARY ARTERIAL HYPERTENSION
     Dosage: 0.23 MG, 4X/DAY
     Dates: start: 20171128

REACTIONS (1)
  - Cytomegalovirus infection [Fatal]

NARRATIVE: CASE EVENT DATE: 20171130
